FAERS Safety Report 16055643 (Version 2)
Quarter: 2019Q1

REPORT INFORMATION
  Report Type: Spontaneous
  Country: CA (occurrence: CA)
  Receive Date: 20190311
  Receipt Date: 20190330
  Transmission Date: 20190418
  Serious: Yes (Other)
  Sender: FDA-Public Use
  Company Number: CA-CELLTRION INC.-2018CA018941

PATIENT

DRUGS (16)
  1. INFLECTRA [Suspect]
     Active Substance: INFLIXIMAB-DYYB
     Dosage: 500 MG , EVERY 8  WEEKS
     Route: 042
     Dates: start: 20180514, end: 20180514
  2. INFLECTRA [Suspect]
     Active Substance: INFLIXIMAB-DYYB
     Dosage: 7.5 MG/KG, EVERY 8  WEEKS)
     Route: 042
     Dates: start: 20180905, end: 20180905
  3. SULFASALAZINE. [Concomitant]
     Active Substance: SULFASALAZINE
     Indication: PRODUCT USED FOR UNKNOWN INDICATION
     Dosage: 1000 MG, BID (2X/DAY)
     Dates: start: 201709
  4. INFLECTRA [Suspect]
     Active Substance: INFLIXIMAB-DYYB
     Dosage: 7.5 MG/KG, EVERY 8  WEEKS)
     Route: 042
     Dates: start: 20180709
  5. INFLECTRA [Suspect]
     Active Substance: INFLIXIMAB-DYYB
     Dosage: 8 MG/KG, EVERY 8 WEEKS
     Route: 042
     Dates: start: 20181105
  6. INFLECTRA [Suspect]
     Active Substance: INFLIXIMAB-DYYB
     Indication: PSORIATIC ARTHROPATHY
     Dosage: 5 MG/KG, EVERY (Q) 0,2,WEEKS,THEN EVERY 8 WEEKS)
     Route: 042
     Dates: start: 20180215, end: 20180327
  7. INFLECTRA [Suspect]
     Active Substance: INFLIXIMAB-DYYB
     Dosage: 7.5 MG/KG, EVERY 8  WEEKS
     Route: 042
     Dates: start: 20180709
  8. INFLECTRA [Suspect]
     Active Substance: INFLIXIMAB-DYYB
     Dosage: 7.5 MG/KG, EVERY 8  WEEKS)
     Route: 042
     Dates: start: 20180709
  9. INFLECTRA [Suspect]
     Active Substance: INFLIXIMAB-DYYB
     Dosage: 7.5 MG/KG, EVERY 8  WEEKS)
     Route: 042
     Dates: start: 20180905
  10. INFLECTRA [Suspect]
     Active Substance: INFLIXIMAB-DYYB
     Dosage: 8 MG/KG, EVERY 8 WEEKS
     Route: 042
     Dates: start: 20181231
  11. HUMIRA [Concomitant]
     Active Substance: ADALIMUMAB
     Dosage: 40 MG, 1/WEEK
     Dates: start: 2008
  12. BENADRYL [Concomitant]
     Active Substance: DIPHENHYDRAMINE HYDROCHLORIDE
     Indication: PREMEDICATION
     Dosage: 50 MG
     Route: 042
     Dates: start: 20180709
  13. INFLECTRA [Suspect]
     Active Substance: INFLIXIMAB-DYYB
     Dosage: 8 MG/KG, EVERY 8 WEEKS
     Route: 042
     Dates: start: 20190225
  14. SOLU-CORTEF [Concomitant]
     Active Substance: HYDROCORTISONE SODIUM SUCCINATE
     Indication: PREMEDICATION
     Dosage: 100 MG
     Route: 042
     Dates: start: 20180327
  15. INFLECTRA [Suspect]
     Active Substance: INFLIXIMAB-DYYB
     Dosage: 8 MG/KG, EVERY 8 WEEKS
     Route: 042
     Dates: start: 20181231
  16. FETZIMA [Concomitant]
     Active Substance: LEVOMILNACIPRAN HYDROCHLORIDE
     Dosage: 40 MG, 1X/DAY (OD)
     Route: 048
     Dates: start: 20180706

REACTIONS (14)
  - Nausea [Unknown]
  - Weight increased [Unknown]
  - Product use issue [Unknown]
  - Musculoskeletal pain [Unknown]
  - Insomnia [Unknown]
  - Oedema peripheral [Not Recovered/Not Resolved]
  - Blood pressure increased [Unknown]
  - Arthralgia [Unknown]
  - Headache [Recovered/Resolved]
  - Throat irritation [Unknown]
  - Depression [Unknown]
  - Blood pressure fluctuation [Unknown]
  - Polyarthritis [Not Recovered/Not Resolved]
  - Dizziness [Not Recovered/Not Resolved]

NARRATIVE: CASE EVENT DATE: 2018
